FAERS Safety Report 7226871-1 (Version None)
Quarter: 2011Q1

REPORT INFORMATION
  Report Type: 
  Country: None (occurrence: None)
  Receive Date: 20110105
  Receipt Date: 20101229
  Transmission Date: 20110831
  Serious: Yes (Hospitalization, Other)
  Sender: FDA-Public Use
  Company Number: 2009SP017372

PATIENT
  Age: 53 Year
  Sex: Female
  Weight: 68.0396 kg

DRUGS (21)
  1. NUVARING [Suspect]
     Indication: HORMONE REPLACEMENT THERAPY
     Dosage: 1 DF;QM;VAG
     Route: 067
     Dates: start: 20030801, end: 20070101
  2. SKELAXIN [Concomitant]
  3. DOXYCYCLINE [Concomitant]
  4. AMBIEN CR [Concomitant]
  5. TOBRADEX [Concomitant]
  6. MOBIC [Concomitant]
  7. BACTROBAN [Concomitant]
  8. TRETINOIN [Concomitant]
  9. TRILYTE [Concomitant]
  10. SULFAMETHOXAZOLE AND TRIMETHOPRIM [Concomitant]
  11. ZOLOFT [Concomitant]
  12. HYDROCODONE BITARTRATE + ACETAMINOPHEN [Concomitant]
  13. ALEVE [Concomitant]
  14. PREDNISONE 6 [Concomitant]
  15. HYDROCODONE BITARTRATE + ACETAMINOPHEN [Concomitant]
  16. NITROFURANTOIN [Concomitant]
  17. ALLEGRA [Concomitant]
  18. ZITHROMAX [Concomitant]
  19. EFFEXOR XR [Concomitant]
  20. FLUOROMETHOLONE [Concomitant]
  21. TRANSDERM SCOP [Concomitant]

REACTIONS (16)
  - PULMONARY EMBOLISM [None]
  - LUMBAR RADICULOPATHY [None]
  - MOOD SWINGS [None]
  - INTERVERTEBRAL DISC PROTRUSION [None]
  - URINARY TRACT INFECTION [None]
  - DIVERTICULUM INTESTINAL [None]
  - HAEMORRHOIDS [None]
  - GASTROOESOPHAGEAL REFLUX DISEASE [None]
  - HOT FLUSH [None]
  - SKIN CANCER [None]
  - FOLLICULITIS [None]
  - VULVAL DISORDER [None]
  - HEPATIC CYST [None]
  - URINARY TRACT DISORDER [None]
  - HYPOTHYROIDISM [None]
  - HYPERTONIC BLADDER [None]
